FAERS Safety Report 14210599 (Version 3)
Quarter: 2018Q1

REPORT INFORMATION
  Report Type: Spontaneous
  Country: FR (occurrence: FR)
  Receive Date: 20171121
  Receipt Date: 20180105
  Transmission Date: 20180508
  Serious: Yes (Hospitalization, Other)
  Sender: FDA-Public Use
  Company Number: FR-PFIZER INC-2017493723

PATIENT
  Age: 73 Year
  Sex: Female

DRUGS (6)
  1. BISOPROLOL FUMARATE. [Suspect]
     Active Substance: BISOPROLOL FUMARATE
     Indication: HYPERTENSION
     Dosage: 5 MG, 1X/DAY (EVENING)
     Route: 048
     Dates: start: 20170601
  2. ALDACTONE [Suspect]
     Active Substance: SPIRONOLACTONE
     Indication: HYPERTENSION
     Dosage: 1 DF, 1X/DAY (EVENING)
     Route: 048
     Dates: start: 20170601, end: 20170613
  3. LODOZ [Suspect]
     Active Substance: BISOPROLOL FUMARATE\HYDROCHLOROTHIAZIDE
     Indication: HYPERTENSION
     Dosage: 1 DF, 1X/DAY (MORNING)
     Route: 048
     Dates: start: 20170504, end: 20170513
  4. LODOZ [Suspect]
     Active Substance: BISOPROLOL FUMARATE\HYDROCHLOROTHIAZIDE
     Dosage: 1 DF, 1X/DAY (MORNING)
     Route: 048
     Dates: start: 20170513, end: 20170601
  5. LERCAN [Suspect]
     Active Substance: LERCANIDIPINE
     Dosage: UNK
     Dates: start: 20170513, end: 20170514
  6. LODOZ [Suspect]
     Active Substance: BISOPROLOL FUMARATE\HYDROCHLOROTHIAZIDE
     Dosage: 1 DF, 1X/DAY (MORNING)
     Route: 048
     Dates: start: 20170601

REACTIONS (5)
  - Asthenia [Unknown]
  - Fall [Recovered/Resolved]
  - Wrist fracture [Recovered/Resolved]
  - Drug ineffective [Recovered/Resolved]
  - Hypotension [Recovered/Resolved]

NARRATIVE: CASE EVENT DATE: 201705
